FAERS Safety Report 8849499 (Version 1)
Quarter: 2012Q4

REPORT INFORMATION
  Report Type: 
  Country: FR (occurrence: FR)
  Receive Date: 20121019
  Receipt Date: 20121019
  Transmission Date: 20130627
  Serious: Yes (Hospitalization)
  Sender: FDA-Public Use
  Company Number: PHHY2012FR091652

PATIENT
  Sex: Female

DRUGS (7)
  1. SIMVASTATIN SANDOZ [Suspect]
     Dosage: 20 mg, UNK
     Route: 048
     Dates: end: 20120618
  2. DABIGATRAN ETEXILATE [Suspect]
     Indication: ATRIAL FIBRILLATION
     Dosage: 110 mg, BID
     Route: 048
     Dates: start: 20120604, end: 20120618
  3. ISOPTINE [Concomitant]
     Dates: start: 20120604
  4. SPIRIVA [Concomitant]
  5. FLIXOTIDE [Concomitant]
  6. FORADIL [Concomitant]
  7. LANSOPRAZOLE [Concomitant]

REACTIONS (9)
  - Lung disorder [Recovering/Resolving]
  - Dyspnoea [Recovering/Resolving]
  - Hypoxia [Recovering/Resolving]
  - Cough [Recovering/Resolving]
  - Sarcoidosis [Recovering/Resolving]
  - Hilar lymphadenopathy [Recovering/Resolving]
  - C-reactive protein increased [Unknown]
  - Arthralgia [Unknown]
  - Constipation [Unknown]
